FAERS Safety Report 8613653-9 (Version None)
Quarter: 2012Q3

REPORT INFORMATION
  Report Type: 
  Country: None (occurrence: None)
  Receive Date: 20120823
  Receipt Date: 20120125
  Transmission Date: 20120928
  Serious: Yes (Hospitalization)
  Sender: FDA-Public Use
  Company Number: PL-009507513-2010SP057152

PATIENT

DRUGS (13)
  1. BOCEPREVIR [Suspect]
     Dosage: 800 MG, TID
     Route: 048
     Dates: start: 20100729
  2. VIREAD [Suspect]
     Indication: HIV INFECTION
     Dosage: 1 DF, QD
     Route: 048
     Dates: start: 20100518
  3. BEBETINA [Concomitant]
     Dosage: 500 MG, ONCE
     Route: 065
     Dates: start: 20101021
  4. BOCEPREVIR [Suspect]
     Indication: HEPATITIS C
     Dosage: 800 MG, TID
     Route: 048
     Dates: start: 20100729
  5. LOPINAVIR AND RITONAVIR [Suspect]
     Indication: HIV INFECTION
     Dosage: 2 DF, BID
     Route: 048
     Dates: start: 20100518
  6. RIBAVIRIN [Suspect]
     Indication: HEPATITIS C
     Dosage: 800 MG, QD
     Route: 048
     Dates: start: 20100701
  7. BEBETINA [Concomitant]
     Indication: HEADACHE
     Dosage: 500 MG, ONCE
     Route: 065
     Dates: start: 20101008
  8. BOCEPREVIR [Suspect]
     Dosage: 800 MG, TID
     Route: 048
     Dates: start: 20100729
  9. PEGINTERFERON ALFA-2B [Suspect]
     Indication: HEPATITIS C
     Dosage: 80 MICROGRAM, QW
     Route: 058
     Dates: start: 20100701
  10. BEBETINA [Concomitant]
     Dosage: 500 MG, ONCE
     Route: 065
     Dates: start: 20101015
  11. EPIVIR [Suspect]
     Indication: HIV INFECTION
     Dosage: 1 DF, QD
     Route: 048
     Dates: start: 20100518
  12. BOCEPREVIR [Suspect]
     Dosage: 800 MG, TID
     Route: 048
     Dates: start: 20100729
  13. BEBETINA [Concomitant]
     Dosage: 500 MG, ONCE
     Route: 065
     Dates: start: 20101022

REACTIONS (1)
  - LYMPHADENOPATHY [None]
